FAERS Safety Report 4466864-0 (Version None)
Quarter: 2004Q3

REPORT INFORMATION
  Report Type: 
  Country: None (occurrence: None)
  Receive Date: 20040928
  Receipt Date: 20040928
  Transmission Date: 20050211
  Serious: Yes (Other)
  Sender: FDA-Public Use
  Company Number: None

PATIENT
  Sex: Female

DRUGS (3)
  1. TERBUTALINE 5 MG /GLOBAL MANUF [Suspect]
     Indication: PREMATURE LABOUR
     Dosage: 5 MG PO Q 4 H
     Route: 048
     Dates: start: 20040909
  2. COLACE [Concomitant]
  3. FESO4 [Concomitant]

REACTIONS (1)
  - URTICARIA [None]
